FAERS Safety Report 24095631 (Version 1)
Quarter: 2024Q3

REPORT INFORMATION
  Report Type: Spontaneous
  Country: MA (occurrence: MA)
  Receive Date: 20240716
  Receipt Date: 20240716
  Transmission Date: 20241016
  Serious: Yes (Other)
  Sender: HIKMA
  Company Number: MA-HIKMA PHARMACEUTICALS-MA-H14001-24-06423

PATIENT
  Age: 38 Year
  Sex: Female

DRUGS (2)
  1. CARBOPLATIN [Suspect]
     Active Substance: CARBOPLATIN
     Indication: Squamous cell carcinoma of the cervix
     Dosage: AUC 5, 3W
     Route: 065
  2. PACLITAXEL [Suspect]
     Active Substance: PACLITAXEL
     Indication: Squamous cell carcinoma of the cervix
     Dosage: 175 MILLIGRAM/SQ. METER, 3W
     Route: 065

REACTIONS (1)
  - Posterior reversible encephalopathy syndrome [Recovering/Resolving]
